FAERS Safety Report 4626699-2 (Version None)
Quarter: 2005Q2

REPORT INFORMATION
  Report Type: 
  Country: None (occurrence: None)
  Receive Date: 20050405
  Receipt Date: 20050324
  Transmission Date: 20051028
  Serious: Yes (Death, Other)
  Sender: FDA-Public Use
  Company Number: US-JNJFOC-20050200841

PATIENT
  Age: 77 Year
  Sex: Male

DRUGS (1)
  1. REMICADE [Suspect]
     Indication: RHEUMATOID ARTHRITIS
     Dosage: TOTAL OF 6 OR 7 INFUSIONS.
     Route: 042

REACTIONS (2)
  - DEATH [None]
  - RENAL IMPAIRMENT [None]
